FAERS Safety Report 19702724 (Version 3)
Quarter: 2021Q3

REPORT INFORMATION
  Report Type: Spontaneous
  Country: CA (occurrence: CA)
  Receive Date: 20210815
  Receipt Date: 20210909
  Transmission Date: 20211014
  Serious: Yes (Other)
  Sender: FDA-Public Use
  Company Number: CA-BAUSCH-BL-2021-027666

PATIENT
  Age: 51 Year
  Sex: Female

DRUGS (5)
  1. OLAPARIB. [Concomitant]
     Active Substance: OLAPARIB
     Indication: OVARIAN CANCER METASTATIC
     Dates: start: 201811, end: 2019
  2. DEXAMETHASONE. [Suspect]
     Active Substance: DEXAMETHASONE
     Indication: INTRACRANIAL PRESSURE INCREASED
  3. OLAPARIB. [Concomitant]
     Active Substance: OLAPARIB
     Dosage: RESTARTED AFTER 2 WEEKS
     Dates: start: 2020
  4. DEXAMETHASONE. [Suspect]
     Active Substance: DEXAMETHASONE
     Indication: VASOGENIC CEREBRAL OEDEMA
     Route: 065
     Dates: start: 2020
  5. OLAPARIB. [Concomitant]
     Active Substance: OLAPARIB
     Indication: METASTASES TO CENTRAL NERVOUS SYSTEM
     Dosage: RESTARTED AFTER 3 WEEK BREAK
     Dates: start: 201910, end: 2020

REACTIONS (1)
  - Steroid diabetes [Unknown]

NARRATIVE: CASE EVENT DATE: 2020
